FAERS Safety Report 19503623 (Version 3)
Quarter: 2025Q2

REPORT INFORMATION
  Report Type: Report from Study
  Country: AT (occurrence: AT)
  Receive Date: 20210708
  Receipt Date: 20250530
  Transmission Date: 20250716
  Serious: Yes (Hospitalization, Other)
  Sender: ROCHE
  Company Number: AT-CELLTRION HEALTHCARE HUNGARY KFT-2021AT005284

PATIENT
  Age: 62 Year
  Sex: Female
  Weight: 80.0 kg

DRUGS (76)
  1. PERTUZUMAB [Suspect]
     Active Substance: PERTUZUMAB
     Indication: HER2 positive breast cancer
     Dosage: (DOSE ON: 21/NOV/2017)
     Route: 065
     Dates: start: 20170306
  2. TRASTUZUMAB [Suspect]
     Active Substance: TRASTUZUMAB
     Indication: HER2 positive breast cancer
     Dosage: (DOSE ON 21/NOV/2017, 04/SEP/2018, 23/OCT/2018, 27/MAY/2019)
     Route: 042
     Dates: start: 20170306
  3. TRASTUZUMAB [Suspect]
     Active Substance: TRASTUZUMAB
     Route: 042
     Dates: start: 20190507, end: 20190507
  4. TRASTUZUMAB [Suspect]
     Active Substance: TRASTUZUMAB
     Route: 065
     Dates: start: 20171212, end: 20180424
  5. TRASTUZUMAB [Suspect]
     Active Substance: TRASTUZUMAB
     Route: 065
     Dates: start: 20171212, end: 20180424
  6. TRASTUZUMAB [Suspect]
     Active Substance: TRASTUZUMAB
     Route: 065
     Dates: start: 20180515
  7. TRASTUZUMAB [Suspect]
     Active Substance: TRASTUZUMAB
     Route: 042
     Dates: start: 20190322
  8. TRASTUZUMAB [Suspect]
     Active Substance: TRASTUZUMAB
     Route: 042
     Dates: end: 20190617
  9. CAPECITABINE [Suspect]
     Active Substance: CAPECITABINE
     Indication: HER2 positive breast cancer
     Dosage: (DOSE ON: 04/SEP/2018, 10/SEP/2018, 27/MAY/2019)
     Route: 048
     Dates: end: 20180910
  10. CAPECITABINE [Suspect]
     Active Substance: CAPECITABINE
     Route: 048
  11. CAPECITABINE [Suspect]
     Active Substance: CAPECITABINE
     Route: 048
     Dates: start: 20190617, end: 201909
  12. ADO-TRASTUZUMAB EMTANSINE [Suspect]
     Active Substance: ADO-TRASTUZUMAB EMTANSINE
     Indication: HER2 positive breast cancer
     Dosage: (DOSE ON 24/APR/2018, 15/MAY/2018)
     Route: 042
  13. ADO-TRASTUZUMAB EMTANSINE [Suspect]
     Active Substance: ADO-TRASTUZUMAB EMTANSINE
     Route: 042
  14. ADO-TRASTUZUMAB EMTANSINE [Suspect]
     Active Substance: ADO-TRASTUZUMAB EMTANSINE
     Dosage: (MOST RECENT DOSE PRIOR TO THE EVENT)
     Route: 042
  15. ADO-TRASTUZUMAB EMTANSINE [Suspect]
     Active Substance: ADO-TRASTUZUMAB EMTANSINE
     Route: 042
  16. ADO-TRASTUZUMAB EMTANSINE [Suspect]
     Active Substance: ADO-TRASTUZUMAB EMTANSINE
     Route: 042
  17. ADO-TRASTUZUMAB EMTANSINE [Suspect]
     Active Substance: ADO-TRASTUZUMAB EMTANSINE
     Route: 042
  18. HERCEPTIN [Suspect]
     Active Substance: TRASTUZUMAB
     Indication: HER2 positive breast cancer
     Route: 065
     Dates: start: 20170306
  19. LAPATINIB [Suspect]
     Active Substance: LAPATINIB
     Indication: HER2 positive breast cancer
     Route: 048
     Dates: start: 20190116, end: 20190206
  20. LAPATINIB [Suspect]
     Active Substance: LAPATINIB
     Route: 048
     Dates: end: 20190116
  21. VINORELBINE [Suspect]
     Active Substance: VINORELBINE TARTRATE
     Indication: HER2 positive breast cancer
     Route: 048
     Dates: start: 20170306
  22. NAVELBINE [Suspect]
     Active Substance: VINORELBINE TARTRATE
     Indication: HER2 positive breast cancer
     Route: 065
     Dates: start: 20170306, end: 20170530
  23. BUPRENORPHINE HYDROCHLORIDE [Concomitant]
     Active Substance: BUPRENORPHINE HYDROCHLORIDE
  24. PARACODIN [Concomitant]
     Indication: Dyspnoea
     Dates: start: 20190510
  25. PARACODIN [Concomitant]
     Indication: Cough
     Dates: start: 20180115
  26. MORPHINE [Concomitant]
     Active Substance: MORPHINE
  27. DEXAMETHASONE [Concomitant]
     Active Substance: DEXAMETHASONE
     Dates: start: 20170829, end: 20181013
  28. BUPRENORPHINE [Concomitant]
     Active Substance: BUPRENORPHINE
  29. DOXYCYCLINE [Concomitant]
     Active Substance: DOXYCYCLINE
     Indication: Respiratory tract infection
     Dates: start: 20190502, end: 20190509
  30. PREDNISOLONE SODIUM SUCCINATE [Concomitant]
     Active Substance: PREDNISOLONE SODIUM SUCCINATE
  31. KALIORAL (AUSTRIA) [Concomitant]
  32. TEMESTA [Concomitant]
     Dates: start: 20190226
  33. SUCRALFATE [Concomitant]
     Active Substance: SUCRALFATE
     Dates: end: 20190907
  34. LYRICA [Concomitant]
     Active Substance: PREGABALIN
     Indication: Back pain
     Dates: start: 20181227, end: 20190226
  35. ZOLPIDEM [Concomitant]
     Active Substance: ZOLPIDEM TARTRATE
     Dates: start: 20190215, end: 20190315
  36. MANNIT [Concomitant]
  37. LASIX [Concomitant]
     Active Substance: FUROSEMIDE
     Dates: end: 20190907
  38. BUPRENORPHINE [Concomitant]
     Active Substance: BUPRENORPHINE
     Indication: Product used for unknown indication
  39. LACTULOSE [Concomitant]
     Active Substance: LACTULOSE
     Dates: start: 20171212, end: 20190907
  40. RANITIDINE HYDROCHLORIDE [Concomitant]
     Active Substance: RANITIDINE HYDROCHLORIDE
  41. DIMETHINDENE [Concomitant]
     Active Substance: DIMETHINDENE
  42. AUGMENTIN [Concomitant]
     Active Substance: AMOXICILLIN\CLAVULANATE POTASSIUM
     Indication: Respiratory tract infection
     Dates: start: 20190509, end: 20190516
  43. EMEND [Concomitant]
     Active Substance: APREPITANT
     Dates: start: 20180127, end: 20181013
  44. EMEND [Concomitant]
     Active Substance: APREPITANT
     Dates: start: 20180128, end: 20181014
  45. EMEND [Concomitant]
     Active Substance: APREPITANT
     Dates: start: 20180129, end: 20181015
  46. ZYRTEC (AUSTRIA) [Concomitant]
  47. TRAZODONE HYDROCHLORIDE [Concomitant]
     Active Substance: TRAZODONE HYDROCHLORIDE
     Dates: start: 20181215, end: 20190226
  48. NOVALGIN (AUSTRIA) [Concomitant]
     Indication: Back pain
     Dates: start: 20171212, end: 20190907
  49. NOVALGIN (AUSTRIA) [Concomitant]
     Indication: Respiratory tract infection
     Dates: start: 20190509, end: 20190509
  50. NOVALGIN (AUSTRIA) [Concomitant]
     Indication: Hepatic pain
     Dates: start: 20170327, end: 20191003
  51. NOVALGIN (AUSTRIA) [Concomitant]
     Dates: start: 20190315, end: 20190907
  52. MORPHINE [Concomitant]
     Active Substance: MORPHINE
  53. EDOXABAN TOSYLATE [Concomitant]
     Active Substance: EDOXABAN TOSYLATE
     Indication: Pulmonary embolism
     Dates: start: 20190315
  54. EDOXABAN TOSYLATE [Concomitant]
     Active Substance: EDOXABAN TOSYLATE
     Dates: start: 20190315, end: 20190907
  55. AMOXICILLIN [Concomitant]
     Active Substance: AMOXICILLIN
     Indication: Respiratory tract infection
     Dates: start: 20190509, end: 20190516
  56. PANTOPRAZOLE SODIUM [Concomitant]
     Active Substance: PANTOPRAZOLE SODIUM
     Indication: Product used for unknown indication
     Dates: start: 20170302
  57. CORTISON [Concomitant]
     Indication: Respiratory tract infection
     Dates: start: 20190615, end: 20190615
  58. LAPATINIB DITOSYLATE [Concomitant]
     Active Substance: LAPATINIB DITOSYLATE
     Route: 048
     Dates: start: 20181227, end: 20190116
  59. LAPATINIB DITOSYLATE [Concomitant]
     Active Substance: LAPATINIB DITOSYLATE
     Route: 048
     Dates: start: 20190116, end: 20190206
  60. DIAMOX SEQUELS [Concomitant]
     Active Substance: ACETAZOLAMIDE
  61. VENLAFAXINE HYDROCHLORIDE [Concomitant]
     Active Substance: VENLAFAXINE HYDROCHLORIDE
     Dates: start: 20190315, end: 20190907
  62. LOVENOX [Concomitant]
     Active Substance: ENOXAPARIN SODIUM
     Dates: start: 20180126, end: 20180208
  63. BISOPROLOL FUMARATE [Concomitant]
     Active Substance: BISOPROLOL FUMARATE
     Dates: end: 20190907
  64. DAFLON [Concomitant]
     Dates: end: 20190907
  65. KYTRIL [Concomitant]
     Active Substance: GRANISETRON HYDROCHLORIDE
     Dates: start: 20171212, end: 20181013
  66. HYDROMORPHONE HYDROCHLORIDE [Concomitant]
     Active Substance: HYDROMORPHONE HYDROCHLORIDE
     Indication: Back pain
     Dates: start: 20181227, end: 20190907
  67. HYDROMORPHONE HYDROCHLORIDE [Concomitant]
     Active Substance: HYDROMORPHONE HYDROCHLORIDE
     Dates: start: 20180628, end: 20190226
  68. PASPERTIN [Concomitant]
     Dates: start: 20171212, end: 20190907
  69. BAMBUTEROL HYDROCHLORIDE [Concomitant]
     Active Substance: BAMBUTEROL HYDROCHLORIDE
  70. ACETAMINOPHEN [Concomitant]
     Active Substance: ACETAMINOPHEN
  71. MIRTAZAPINE [Concomitant]
     Active Substance: MIRTAZAPINE
     Dates: start: 20190315, end: 20190907
  72. MIRTAZAPINE [Concomitant]
     Active Substance: MIRTAZAPINE
     Dates: start: 20190315
  73. DEXAMETHASONE [Concomitant]
     Active Substance: DEXAMETHASONE
     Dates: start: 20190215, end: 20190215
  74. DEXAMETHASONE [Concomitant]
     Active Substance: DEXAMETHASONE
     Dates: start: 20190215, end: 20190907
  75. DIFLUCAN [Concomitant]
     Active Substance: FLUCONAZOLE
  76. DICLOFENAC SODIUM\ORPHENADRINE CITRATE [Concomitant]
     Active Substance: DICLOFENAC SODIUM\ORPHENADRINE CITRATE

REACTIONS (20)
  - Nausea [Recovered/Resolved]
  - Diarrhoea [Recovered/Resolved]
  - Headache [Recovered/Resolved]
  - Myalgia [Recovered/Resolved]
  - Headache [Recovered/Resolved]
  - Underdose [Unknown]
  - Blindness [Recovered/Resolved with Sequelae]
  - Cough [Recovered/Resolved]
  - Vertigo [Not Recovered/Not Resolved]
  - Angina pectoris [Recovered/Resolved]
  - Vomiting [Recovered/Resolved]
  - Polyneuropathy [Not Recovered/Not Resolved]
  - Bone pain [Recovered/Resolved]
  - Polyneuropathy [Recovered/Resolved]
  - Chills [Recovered/Resolved]
  - Vertigo [Recovered/Resolved]
  - Epistaxis [Recovered/Resolved]
  - Vomiting [Recovered/Resolved]
  - Visual impairment [Not Recovered/Not Resolved]
  - Headache [Unknown]

NARRATIVE: CASE EVENT DATE: 20170306
